FAERS Safety Report 4565648-2 (Version None)
Quarter: 2005Q1

REPORT INFORMATION
  Report Type: 
  Country: None (occurrence: None)
  Receive Date: 20050126
  Receipt Date: 20050114
  Transmission Date: 20050727
  Serious: Yes (Hospitalization)
  Sender: FDA-Public Use
  Company Number: 2005014810

PATIENT
  Sex: Female
  Weight: 71.6683 kg

DRUGS (4)
  1. ZANTAC 75 [Suspect]
     Indication: HERNIA
     Dosage: 150 MG PRN, ORAL
     Route: 048
  2. METOPROLOL SUCCINATE [Concomitant]
  3. AMLODIPINE BESYLATE [Concomitant]
  4. SIMVASTATIN [Concomitant]

REACTIONS (2)
  - CHOKING [None]
  - OESOPHAGEAL DILATATION [None]
